FAERS Safety Report 25583858 (Version 2)
Quarter: 2025Q3

REPORT INFORMATION
  Report Type: Spontaneous
  Country: CA (occurrence: CA)
  Receive Date: 20250721
  Receipt Date: 20250804
  Transmission Date: 20251021
  Serious: Yes (Hospitalization, Other)
  Sender: SANDOZ
  Company Number: CA-SANDOZ-SDZ2025CA051128

PATIENT
  Age: 56 Year
  Sex: Female

DRUGS (9)
  1. ENOXAPARIN [Suspect]
     Active Substance: ENOXAPARIN
     Indication: Cardiac operation
     Route: 065
  2. ENOXAPARIN [Suspect]
     Active Substance: ENOXAPARIN
     Indication: Anticoagulant therapy
  3. HEPARIN SODIUM [Suspect]
     Active Substance: HEPARIN SODIUM
     Indication: Anticoagulant therapy
     Route: 042
  4. HEPARIN SODIUM [Suspect]
     Active Substance: HEPARIN SODIUM
     Indication: Cardiac operation
     Route: 042
  5. HUMAN IMMUNOGLOBULIN G [Suspect]
     Active Substance: HUMAN IMMUNOGLOBULIN G
     Route: 042
  6. HUMAN IMMUNOGLOBULIN G [Suspect]
     Active Substance: HUMAN IMMUNOGLOBULIN G
     Indication: Heparin-induced thrombocytopenia test
     Route: 065
  7. BIVALIRUDIN [Concomitant]
     Active Substance: BIVALIRUDIN
     Indication: Product used for unknown indication
     Route: 042
  8. BIVALIRUDIN [Concomitant]
     Active Substance: BIVALIRUDIN
     Indication: Anticoagulant therapy
     Route: 042
  9. PROTAMINE [Concomitant]
     Active Substance: PROTAMINE
     Indication: Heparin neutralisation therapy
     Route: 065

REACTIONS (2)
  - Heparin-induced thrombocytopenia [Unknown]
  - Autoimmune heparin-induced thrombocytopenia [Recovering/Resolving]
